FAERS Safety Report 20338064 (Version 2)
Quarter: 2022Q4

REPORT INFORMATION
  Report Type: Spontaneous
  Country: JP (occurrence: JP)
  Receive Date: 20220115
  Receipt Date: 20221004
  Transmission Date: 20230112
  Serious: Yes (Death, Other)
  Sender: FDA-Public Use
  Company Number: JP-UNITED THERAPEUTICS-UNT-2022-000842

PATIENT
  Age: 6 Year
  Sex: Male
  Weight: 17.2 kg

DRUGS (3)
  1. UNITUXIN [Suspect]
     Active Substance: DINUTUXIMAB
     Indication: Neuroblastoma
     Dosage: UNK, CYCLICAL (CYCLE 1)
     Route: 041
     Dates: start: 20211206, end: 20211209
  2. FILGRASTIM [Concomitant]
     Active Substance: FILGRASTIM
     Indication: Neuroblastoma
     Dosage: UNK
     Route: 065
  3. TECELEUKIN [Concomitant]
     Active Substance: TECELEUKIN
     Indication: Neuroblastoma
     Dosage: UNK
     Route: 065

REACTIONS (3)
  - Neuroblastoma [Fatal]
  - Ascites [Not Recovered/Not Resolved]
  - Pyrexia [Recovered/Resolved]

NARRATIVE: CASE EVENT DATE: 20211206
